FAERS Safety Report 8852647 (Version 2)
Quarter: 2013Q1

REPORT INFORMATION
  Report Type: Report from Study
  Country: DE (occurrence: DE)
  Receive Date: 20121022
  Receipt Date: 20130306
  Transmission Date: 20140127
  Serious: Yes (Life-Threatening, Hospitalization)
  Sender: FDA-Public Use
  Company Number: DE-PFIZER INC-2012257548

PATIENT
  Age: 42 Year
  Sex: Female
  Weight: 46 kg

DRUGS (11)
  1. GENOTROPIN [Suspect]
     Indication: CRANIOCEREBRAL INJURY
     Dosage: 0.5 MG/DAY, 7 INJECTIONS/WEEK
     Route: 058
     Dates: start: 20100107
  2. SPIRIVA [Concomitant]
     Indication: DYSPNOEA
     Dosage: 18 UG, 1X/DAY
     Dates: start: 20060113
  3. VIANI DISKUS [Concomitant]
     Indication: DYSPNOEA
     Dosage: 2 DF, 1X/DAY
     Dates: start: 20060113
  4. TRACLEER 125 [Concomitant]
     Indication: ESSENTIAL HYPERTENSION
     Dosage: 2 DF, 1X/DAY
     Route: 048
     Dates: start: 20060427
  5. OXYGEN [Concomitant]
     Indication: OBSTRUCTIVE AIRWAYS DISORDER
     Dosage: 3 OTHER/L/ML DAILY
     Dates: start: 20060606
  6. REVATIO [Concomitant]
     Indication: ESSENTIAL HYPERTENSION
     Dosage: 60 MG, 1X/DAY
     Route: 048
     Dates: start: 20060626
  7. FALITHROM ^FAHLBERG^ [Concomitant]
     Dosage: UNK
     Dates: start: 20060629
  8. CALCIUM D3 [Concomitant]
     Indication: VITAMIN D DEFICIENCY
     Dosage: 2500 MG, AS NEEDED
     Route: 048
     Dates: start: 20080212
  9. CALCIUM D3 [Concomitant]
     Indication: CALCIUM DEFICIENCY
  10. PANTOZOL [Concomitant]
     Indication: GASTRIC DISORDER
     Dosage: 1 DF, AS NEEDED
     Dates: start: 20060113
  11. DESMOPRESSIN [Concomitant]
     Indication: BLOOD ANTIDIURETIC HORMONE DECREASED
     Dosage: 4 DF, 1X/DAY
     Dates: start: 19790715

REACTIONS (1)
  - Lung disorder [Not Recovered/Not Resolved]
